FAERS Safety Report 7251106-3 (Version None)
Quarter: 2011Q1

REPORT INFORMATION
  Report Type: 
  Country: None (occurrence: None)
  Receive Date: 20110128
  Receipt Date: 20110124
  Transmission Date: 20110831
  Serious: Yes (Death)
  Sender: FDA-Public Use
  Company Number: SK-PFIZER INC-2011017085

PATIENT
  Age: 59 Year
  Sex: Male
  Weight: 110 kg

DRUGS (10)
  1. UNDESTOR [Concomitant]
     Indication: BLOOD LUTEINISING HORMONE DECREASED
  2. SIOFOR [Concomitant]
     Indication: DIABETES MELLITUS
  3. UNDESTOR [Concomitant]
     Indication: BLOOD FOLLICLE STIMULATING HORMONE DECREASED
  4. SOMATROPIN [Suspect]
     Indication: HYPOPITUITARISM
     Dosage: 0.5 MG, 1X/DAY
     Dates: start: 20091019
  5. EUTHYROX [Concomitant]
     Indication: BLOOD THYROID STIMULATING HORMONE DECREASED
  6. HYDROCORTISONE [Concomitant]
     Indication: BLOOD CORTICOTROPHIN DECREASED
     Dosage: 30 MG, UNK
     Dates: start: 20070615
  7. EUTHYROX [Concomitant]
     Indication: PRIMARY HYPOTHYROIDISM
     Dosage: 125 UG, 1X/DAY
     Route: 048
     Dates: start: 20070615
  8. DESMOPRESSIN [Concomitant]
     Indication: BLOOD ANTIDIURETIC HORMONE DECREASED
     Dosage: 120 UG, 1X/DAY
     Dates: start: 20070615
  9. SITAGLIPTIN [Concomitant]
     Indication: DIABETES MELLITUS
     Dosage: 100 MG, 1X/DAY
     Route: 048
     Dates: start: 20081115
  10. UNDESTOR [Concomitant]
     Indication: HYPOGONADISM
     Dosage: 40 MG, 2X/DAY
     Route: 048
     Dates: start: 20070815

REACTIONS (1)
  - DEATH [None]
